FAERS Safety Report 9166600 (Version 1)
Quarter: 2013Q1

REPORT INFORMATION
  Report Type: Spontaneous
  Country: IT (occurrence: IT)
  Receive Date: 20130315
  Receipt Date: 20130315
  Transmission Date: 20140127
  Serious: Yes (Hospitalization)
  Sender: FDA-Public Use
  Company Number: IT-SANOFI-AVENTIS-2013SA023590

PATIENT
  Age: 72 Year
  Sex: Male

DRUGS (5)
  1. LASIX [Suspect]
     Indication: CARDIAC DISORDER
     Route: 048
     Dates: start: 20120101
  2. METOLAZONE [Suspect]
     Indication: CARDIAC DISORDER
     Dosage: DOSE:3 UNIT(S)
     Route: 048
     Dates: start: 20120101, end: 20121215
  3. INSULIN ASPART [Concomitant]
     Route: 058
  4. LEVEMIR [Concomitant]
     Route: 058
  5. COUMADIN [Concomitant]
     Dosage: DOSE:1 UNIT(S)
     Route: 048

REACTIONS (3)
  - Psychomotor retardation [Recovered/Resolved]
  - Loss of consciousness [Recovered/Resolved]
  - Somnolence [Recovered/Resolved]
